FAERS Safety Report 12632993 (Version 2)
Quarter: 2016Q3

REPORT INFORMATION
  Report Type: Spontaneous
  Country: US (occurrence: US)
  Receive Date: 20160808
  Receipt Date: 20160808
  Transmission Date: 20161109
  Serious: No
  Sender: FDA-Public Use
  Company Number: US-BEH-2016058010

PATIENT
  Age: 83 Year
  Sex: Female

DRUGS (3)
  1. HIZENTRA [Suspect]
     Active Substance: HUMAN IMMUNOGLOBULIN G
     Indication: IMMUNODEFICIENCY COMMON VARIABLE
     Route: 058
     Dates: start: 20151101
  2. PREDNISONE. [Concomitant]
     Active Substance: PREDNISONE
  3. SPIRONOLACTONE. [Concomitant]
     Active Substance: SPIRONOLACTONE

REACTIONS (1)
  - Renal disorder [Unknown]

NARRATIVE: CASE EVENT DATE: 20151204
